APPROVED DRUG PRODUCT: SIROLIMUS
Active Ingredient: SIROLIMUS
Strength: 1MG
Dosage Form/Route: TABLET;ORAL
Application: A214753 | Product #002 | TE Code: AB
Applicant: ALKEM LABORATORIES LTD
Approved: Mar 12, 2021 | RLD: No | RS: No | Type: RX